FAERS Safety Report 4598914-5 (Version None)
Quarter: 2005Q1

REPORT INFORMATION
  Report Type: 
  Country: None (occurrence: None)
  Receive Date: 20050302
  Receipt Date: 20050214
  Transmission Date: 20050727
  Serious: Yes (Hospitalization)
  Sender: FDA-Public Use
  Company Number: A001-002-006386

PATIENT
  Age: 52 Year
  Sex: Male

DRUGS (9)
  1. ARICEPT [Suspect]
     Indication: DEMENTIA ALZHEIMER'S TYPE
     Dosage: 5 MG, 1 IN 1 D, ORAL
     Route: 048
  2. ARICEPT [Suspect]
     Dosage: 150 MG, 30 IN 1 D, ORAL
     Route: 048
  3. ARICEPT [Suspect]
     Dosage: 5 MG, 1 IN 1 D, ORAL
     Route: 048
  4. LEXAPRO [Suspect]
     Indication: DEPRESSION
     Dosage: 10 MG, 1 IN 1 D, ORAL
     Route: 048
     Dates: start: 20040801
  5. LITHIUM CARBONATE [Concomitant]
  6. VALIUM [Concomitant]
  7. SOMA [Concomitant]
  8. PERCOCET [Concomitant]
  9. PREVACID [Concomitant]

REACTIONS (8)
  - CORONARY ARTERY DISEASE [None]
  - GAIT DISTURBANCE [None]
  - HYPERHIDROSIS [None]
  - INTENTIONAL SELF-INJURY [None]
  - MEDICATION ERROR [None]
  - SUICIDAL IDEATION [None]
  - SUICIDE ATTEMPT [None]
  - WEIGHT DECREASED [None]
